FAERS Safety Report 5565944-6 (Version None)
Quarter: 2007Q4

REPORT INFORMATION
  Report Type: 
  Country: None (occurrence: None)
  Receive Date: 20071219
  Receipt Date: 20071214
  Transmission Date: 20080405
  Serious: Yes (Other)
  Sender: FDA-Public Use
  Company Number: PHEH2004US09998

PATIENT

DRUGS (8)
  1. ZOMETA [Suspect]
     Indication: METASTASES TO BONE
     Dosage: 4 MG, QMO
     Route: 042
     Dates: start: 20020501, end: 20040915
  2. TAMOXIFEN CITRATE [Concomitant]
     Dates: start: 19980101
  3. MEGACE [Concomitant]
     Dates: start: 19980101
  4. VIOXX [Concomitant]
     Dates: start: 19980101
  5. VICODIN [Concomitant]
     Dates: start: 19980101
  6. TAXOL [Concomitant]
     Dates: start: 19980101
  7. ADRIAMYCIN PFS [Concomitant]
     Dates: start: 19980101
  8. AREDIA [Suspect]
     Dosage: 90MG, MONTHLY
     Dates: start: 19980101, end: 20020501

REACTIONS (2)
  - OSTEONECROSIS [None]
  - TOOTH EXTRACTION [None]
